FAERS Safety Report 6695955-9 (Version None)
Quarter: 2010Q2

REPORT INFORMATION
  Report Type: 
  Country: None (occurrence: None)
  Receive Date: 20100426
  Receipt Date: 20100421
  Transmission Date: 20101027
  Serious: Yes (Hospitalization)
  Sender: FDA-Public Use
  Company Number: GB-SP-2010-01000

PATIENT
  Sex: Male

DRUGS (6)
  1. IMMUCYST [Suspect]
     Indication: BLADDER CANCER
     Route: 043
     Dates: start: 20080501, end: 20091207
  2. CANDESARTAN [Concomitant]
  3. SIMVASTATIN [Concomitant]
  4. BISOPROLOL [Concomitant]
  5. ASPIRIN [Concomitant]
  6. CLOPIDOGREL [Concomitant]

REACTIONS (7)
  - BLADDER IRRITATION [None]
  - CATHETER SITE HAEMORRHAGE [None]
  - DISSEMINATED TUBERCULOSIS [None]
  - MEDICAL DEVICE COMPLICATION [None]
  - POLLAKIURIA [None]
  - PYREXIA [None]
  - SEPSIS [None]
